FAERS Safety Report 4978293-1 (Version None)
Quarter: 2006Q2

REPORT INFORMATION
  Report Type: 
  Country: None (occurrence: None)
  Receive Date: 20060417
  Receipt Date: 20060406
  Transmission Date: 20061013
  Serious: Yes (Hospitalization)
  Sender: FDA-Public Use
  Company Number: 163-20785-06010342

PATIENT
  Age: 74 Year
  Sex: Male

DRUGS (6)
  1. THALOMID [Suspect]
     Indication: AMYLOIDOSIS
     Dosage: SEE IMAGE
     Route: 048
     Dates: start: 20050601, end: 20050101
  2. THALOMID [Suspect]
     Indication: MULTIPLE MYELOMA
     Dosage: SEE IMAGE
     Route: 048
     Dates: start: 20050601, end: 20050101
  3. THALOMID [Suspect]
     Indication: AMYLOIDOSIS
     Dosage: SEE IMAGE
     Route: 048
     Dates: start: 20050101
  4. THALOMID [Suspect]
     Indication: MULTIPLE MYELOMA
     Dosage: SEE IMAGE
     Route: 048
     Dates: start: 20050101
  5. PREDNISONE TAB [Concomitant]
  6. PROCRIT [Concomitant]

REACTIONS (5)
  - BALANCE DISORDER [None]
  - CONSTIPATION [None]
  - FATIGUE [None]
  - TREMOR [None]
  - URINARY TRACT INFECTION [None]
